FAERS Safety Report 19816494 (Version 2)
Quarter: 2021Q4

REPORT INFORMATION
  Report Type: Report from Study
  Country: US (occurrence: US)
  Receive Date: 20210909
  Receipt Date: 20211011
  Transmission Date: 20220303
  Serious: Yes (Hospitalization, Other)
  Sender: FDA-Public Use
  Company Number: US-SANOFI-00206824

PATIENT
  Age: 80 Year
  Sex: Male

DRUGS (2)
  1. SARILUMAB [Suspect]
     Active Substance: SARILUMAB
     Indication: Rheumatoid arthritis
     Dosage: 200 MG, QOW
     Route: 058
     Dates: start: 20200602, end: 202006
  2. SARILUMAB [Suspect]
     Active Substance: SARILUMAB
     Dosage: 200 MG, QOW
     Route: 058
     Dates: start: 202007, end: 2021

REACTIONS (16)
  - Spinal cord oedema [Not Recovered/Not Resolved]
  - Back pain [Not Recovered/Not Resolved]
  - Intervertebral disc protrusion [Not Recovered/Not Resolved]
  - Dementia Alzheimer^s type [Unknown]
  - Hallucination [Not Recovered/Not Resolved]
  - Confusional state [Not Recovered/Not Resolved]
  - Disorientation [Not Recovered/Not Resolved]
  - Staphylococcal infection [Not Recovered/Not Resolved]
  - Hip arthroplasty [Unknown]
  - Incisional drainage [Recovering/Resolving]
  - Rotator cuff repair [Recovered/Resolved]
  - Pain [Not Recovered/Not Resolved]
  - Malaise [Unknown]
  - Weight increased [Not Recovered/Not Resolved]
  - Product dose omission issue [Unknown]
  - Product dose omission in error [Unknown]

NARRATIVE: CASE EVENT DATE: 20200101
